FAERS Safety Report 5125467-5 (Version None)
Quarter: 2006Q3

REPORT INFORMATION
  Report Type: 
  Country: None (occurrence: None)
  Receive Date: 20060822
  Receipt Date: 20060516
  Transmission Date: 20061208
  Serious: No
  Sender: FDA-Public Use
  Company Number: PHEH2006US06442

PATIENT
  Sex: Male

DRUGS (2)
  1. ENABLEX [Suspect]
     Dosage: 15 MG, QD
  2. DITROPAN [Suspect]

REACTIONS (2)
  - COGNITIVE DISORDER [None]
  - DRUG INEFFECTIVE [None]
